FAERS Safety Report 18134829 (Version 3)
Quarter: 2024Q1

REPORT INFORMATION
  Report Type: Spontaneous
  Country: JP (occurrence: JP)
  Receive Date: 20200811
  Receipt Date: 20240205
  Transmission Date: 20240409
  Serious: Yes (Death, Other)
  Sender: FDA-Public Use
  Company Number: JP-JAZZ-2020-JP-009920

PATIENT
  Age: 49 Year
  Sex: Female
  Weight: 61.8 kg

DRUGS (1)
  1. DEFITELIO [Suspect]
     Active Substance: DEFIBROTIDE SODIUM
     Indication: Venoocclusive liver disease
     Dosage: 25 MG/KG/DAY
     Route: 042
     Dates: start: 20200124, end: 20200214

REACTIONS (5)
  - Myelofibrosis [Fatal]
  - Disease progression [Fatal]
  - Engraft failure [Fatal]
  - Haematuria [Recovered/Resolved]
  - Off label use [Unknown]

NARRATIVE: CASE EVENT DATE: 20200101
